FAERS Safety Report 21892024 (Version 1)
Quarter: 2023Q1

REPORT INFORMATION
  Report Type: Spontaneous
  Country: US (occurrence: None)
  Receive Date: 20230120
  Receipt Date: 20230120
  Transmission Date: 20230417
  Serious: Yes (Life-Threatening, Hospitalization)
  Sender: FDA-Public Use
  Company Number: None

PATIENT
  Age: 45 Year
  Sex: Female
  Weight: 75.7 kg

DRUGS (3)
  1. NORETHINDRONE [Suspect]
     Active Substance: NORETHINDRONE
     Indication: Uterine leiomyoma
     Dosage: FREQUENCY : DAILY;?
     Route: 048
     Dates: start: 20220831, end: 20230111
  2. NORETHINDRONE [Suspect]
     Active Substance: NORETHINDRONE
     Indication: Uterine haemorrhage
  3. valacyclovir 500 mg tablet TID [Concomitant]
     Dates: end: 20221028

REACTIONS (4)
  - Uterine leiomyoma [None]
  - Deep vein thrombosis [None]
  - Peripheral vein occlusion [None]
  - Superficial vein thrombosis [None]

NARRATIVE: CASE EVENT DATE: 20220831
